FAERS Safety Report 4293428-4 (Version None)
Quarter: 2004Q1

REPORT INFORMATION
  Report Type: 
  Country: None (occurrence: None)
  Receive Date: 20040212
  Receipt Date: 20030624
  Transmission Date: 20041129
  Serious: No
  Sender: FDA-Public Use
  Company Number: US-GLAXOSMITHKLINE-A0413836A

PATIENT
  Age: 60 Year
  Sex: Male

DRUGS (2)
  1. PAXIL [Suspect]
     Dosage: 40MG PER DAY
     Route: 048
  2. INSULIN [Concomitant]

REACTIONS (2)
  - ANOREXIA [None]
  - UNEXPECTED THERAPEUTIC DRUG EFFECT [None]
